FAERS Safety Report 14331353 (Version 1)
Quarter: 2017Q4

REPORT INFORMATION
  Report Type: Other
  Country: ES (occurrence: ES)
  Receive Date: 20171228
  Receipt Date: 20171228
  Transmission Date: 20180321
  Serious: Yes (Life-Threatening, Hospitalization)
  Sender: FDA-Public Use
  Company Number: ES-DEXPHARM-20171925

PATIENT
  Age: 51 Year
  Sex: Male

DRUGS (3)
  1. LINITUL [Concomitant]
  2. BETADINE GEL [Concomitant]
  3. CHLORHEXIDINE-ALCOHOL [Suspect]
     Active Substance: ALCOHOL\CHLORHEXIDINE GLUCONATE

REACTIONS (1)
  - Thermal burn [Unknown]
